FAERS Safety Report 4404117-7 (Version None)
Quarter: 2004Q3

REPORT INFORMATION
  Report Type: 
  Country: None (occurrence: None)
  Receive Date: 20040719
  Receipt Date: 20040712
  Transmission Date: 20050211
  Serious: Yes (Life-Threatening)
  Sender: FDA-Public Use
  Company Number: 2004-07-0363

PATIENT
  Age: 26 Year
  Sex: Female
  Weight: 72 kg

DRUGS (3)
  1. CELESTONE [Suspect]
     Indication: BACK PAIN
     Dosage: ORAL
     Route: 048
  2. VIOXX [Suspect]
     Indication: BACK PAIN
     Dosage: ORAL
     Route: 048
  3. ULTRAM [Suspect]
     Indication: BACK PAIN
     Dosage: ORAL
     Route: 048

REACTIONS (5)
  - BLOOD GLUCOSE ABNORMAL [None]
  - DIABETIC KETOACIDOSIS [None]
  - DYSPEPSIA [None]
  - LEUKOCYTOSIS [None]
  - PANCREATITIS NECROTISING [None]
